FAERS Safety Report 12369629 (Version 1)
Quarter: 2016Q2

REPORT INFORMATION
  Report Type: Spontaneous
  Country: US (occurrence: None)
  Receive Date: 20160513
  Receipt Date: 20160513
  Transmission Date: 20160815
  Serious: No
  Sender: FDA-Public Use
  Company Number: None

PATIENT
  Age: 81 Year
  Sex: Female

DRUGS (1)
  1. SENOKOT [Suspect]
     Active Substance: SENNOSIDES
     Indication: CONSTIPATION
     Dosage: 2 TABS AT BEDTIME ORAL
     Route: 048
     Dates: start: 20160510

REACTIONS (3)
  - Discomfort [None]
  - Flatulence [None]
  - Product label issue [None]

NARRATIVE: CASE EVENT DATE: 20160511
